FAERS Safety Report 17315333 (Version 2)
Quarter: 2020Q1

REPORT INFORMATION
  Report Type: Spontaneous
  Country: US (occurrence: US)
  Receive Date: 20200124
  Receipt Date: 20200210
  Transmission Date: 20200409
  Serious: Yes (Hospitalization, Other)
  Sender: FDA-Public Use
  Company Number: US-MYLANLABS-2020M1006430

PATIENT
  Age: 66 Year
  Sex: Female
  Weight: 66 kg

DRUGS (27)
  1. PREDNISONE. [Suspect]
     Active Substance: PREDNISONE
     Dosage: 10 MILLIGRAM, QOD
  2. FIRDAPSE [Suspect]
     Active Substance: AMIFAMPRIDINE
     Indication: MYASTHENIC SYNDROME
     Dosage: 10 MILLIGRAM, TID
     Route: 048
     Dates: start: 20190816
  3. CELLCEPT [Concomitant]
     Active Substance: MYCOPHENOLATE MOFETIL\MYCOPHENOLATE MOFETIL HYDROCHLORIDE
     Indication: MYASTHENIC SYNDROME
     Dosage: 500 MILLIGRAM, BID
     Route: 048
     Dates: end: 20190820
  4. PYRIDOSTIGMINE                     /00221802/ [Concomitant]
     Active Substance: PYRIDOSTIGMINE BROMIDE
     Indication: MYASTHENIC SYNDROME
     Dosage: 120 MG ONCE DAILY (9:00 AM) AND 60 MG TWICE DAILY (16:00 AND 19:00)
  5. LISINOPRIL. [Concomitant]
     Active Substance: LISINOPRIL
     Dosage: 40 MILLIGRAM, QD
     Route: 048
  6. CYCLOSPORINE. [Concomitant]
     Active Substance: CYCLOSPORINE
     Dosage: 1 DROP IN BOTH EYES EVERY 12 HOURS
     Route: 048
  7. DILTIAZEM. [Concomitant]
     Active Substance: DILTIAZEM
     Dosage: 120 MILLIGRAM, QD (EXTENDED RELEASE)
     Route: 048
  8. SERTRALINE [Concomitant]
     Active Substance: SERTRALINE HYDROCHLORIDE
     Dosage: 200 MILLIGRAM, QD AT BEDTIME
     Route: 048
  9. NEXIUM [Concomitant]
     Active Substance: ESOMEPRAZOLE MAGNESIUM
     Dosage: 40 MILLIGRAM, QD
     Route: 048
  10. ZOLPIDEM [Concomitant]
     Active Substance: ZOLPIDEM TARTRATE
     Dosage: 5 MILLIGRAM
     Route: 048
  11. PREDNISONE. [Suspect]
     Active Substance: PREDNISONE
     Dosage: 5 MILLIGRAM, QOD
  12. FIRDAPSE [Suspect]
     Active Substance: AMIFAMPRIDINE
     Dosage: UNK
     Route: 048
     Dates: start: 2019
  13. PYRIDOSTIGMINE [Concomitant]
     Active Substance: PYRIDOSTIGMINE
     Indication: MYASTHENIC SYNDROME
     Dosage: 120 MILLIGRAM, QD (9:00 AM)
  14. SIMVASTATIN. [Concomitant]
     Active Substance: SIMVASTATIN
     Dosage: 40 MILLIGRAM
     Route: 048
  15. ALLEGRA [Concomitant]
     Active Substance: FEXOFENADINE HYDROCHLORIDE
     Dosage: 180 MILLIGRAM, QD
  16. PREDNISONE. [Suspect]
     Active Substance: PREDNISONE
     Dosage: 1 DOSAGE FORM, QD
     Dates: start: 2002
  17. CALCIUM CARBONATE. [Concomitant]
     Active Substance: CALCIUM CARBONATE
     Dosage: 600 MILLIGRAM, BID
     Route: 048
  18. EZETIMIBE. [Concomitant]
     Active Substance: EZETIMIBE
     Dosage: 10 MG ORALLY AT BEDTIME
     Route: 048
  19. GLIMEPIRIDE. [Concomitant]
     Active Substance: GLIMEPIRIDE
     Dosage: 2 MILLIGRAM, QD
     Route: 048
  20. SYSTANE (POLYETHYLENE GLYCOL 400\PROPYLENE GLYCOL) [Concomitant]
     Active Substance: POLYETHYLENE GLYCOL 400\PROPYLENE GLYCOL
     Dosage: GEL FORMING SOLUTION 1 DROP TO BOTH EYES TWICE DAILY
  21. LOVAZA [Concomitant]
     Active Substance: OMEGA-3-ACID ETHYL ESTERS
     Dosage: 2000 MILLIGRAM, BID
     Route: 048
  22. FIRDAPSE [Suspect]
     Active Substance: AMIFAMPRIDINE
     Dosage: UNK
     Route: 048
     Dates: start: 2019
  23. FIRDAPSE [Suspect]
     Active Substance: AMIFAMPRIDINE
     Dosage: 3.5 YEARS AGO
     Dates: start: 201602, end: 201811
  24. CELLCEPT [Concomitant]
     Active Substance: MYCOPHENOLATE MOFETIL\MYCOPHENOLATE MOFETIL HYDROCHLORIDE
     Dosage: 500 MILLIGRAM, BID
     Route: 048
     Dates: start: 20190820
  25. PYRIDOSTIGMINE [Concomitant]
     Active Substance: PYRIDOSTIGMINE
     Dosage: 60 MILLIGRAM, BID TWICE DAILY (16:00 AND 19:00)
  26. CARVEDILOL. [Concomitant]
     Active Substance: CARVEDILOL
     Dosage: 12.5 MILLIGRAM, BID
     Route: 048
  27. TRADJENTA [Concomitant]
     Active Substance: LINAGLIPTIN
     Dosage: 5 MILLIGRAM, QD
     Route: 048

REACTIONS (9)
  - Ear infection [Recovered/Resolved]
  - Balance disorder [Recovering/Resolving]
  - Myasthenic syndrome [Recovering/Resolving]
  - Coordination abnormal [Not Recovered/Not Resolved]
  - Weight decreased [Unknown]
  - Gait inability [Recovering/Resolving]
  - Tremor [Not Recovered/Not Resolved]
  - Decreased appetite [Unknown]
  - Malaise [Recovering/Resolving]

NARRATIVE: CASE EVENT DATE: 201908
